FAERS Safety Report 10056196 (Version 1)
Quarter: 2014Q2

REPORT INFORMATION
  Report Type: Spontaneous
  Country: BR (occurrence: BR)
  Receive Date: 20140403
  Receipt Date: 20140403
  Transmission Date: 20141212
  Serious: Yes (Hospitalization)
  Sender: FDA-Public Use
  Company Number: BR-ASTRAZENECA-2014SE22426

PATIENT
  Age: 68 Year
  Sex: Female
  Weight: 62 kg

DRUGS (3)
  1. SELOZOK [Suspect]
     Indication: BLOOD PRESSURE FLUCTUATION
     Route: 048
     Dates: start: 201311
  2. CRESTOR [Suspect]
     Indication: BLOOD CHOLESTEROL INCREASED
     Route: 048
     Dates: start: 2012
  3. CONCOMITANT MEDICATIONS [Concomitant]

REACTIONS (2)
  - Coronary artery occlusion [Recovered/Resolved]
  - Blood pressure fluctuation [Recovered/Resolved]
